FAERS Safety Report 6667170-6 (Version None)
Quarter: 2010Q2

REPORT INFORMATION
  Report Type: 
  Country: None (occurrence: None)
  Receive Date: 20100405
  Receipt Date: 20100326
  Transmission Date: 20101027
  Serious: Yes (Disabling, Other)
  Sender: FDA-Public Use
  Company Number: ES-ABBOTT-10P-144-0625648-00

PATIENT
  Age: 74 Year
  Sex: Female
  Weight: 107 kg

DRUGS (2)
  1. HUMIRA [Suspect]
     Indication: PSORIASIS
     Route: 058
     Dates: start: 20090209, end: 20100209
  2. ETANERCEPT [Suspect]
     Indication: PSORIASIS
     Dates: start: 20070101, end: 20070901

REACTIONS (2)
  - DEAFNESS [None]
  - OTOTOXICITY [None]
